FAERS Safety Report 7243495-0 (Version None)
Quarter: 2011Q1

REPORT INFORMATION
  Report Type: 
  Country: None (occurrence: None)
  Receive Date: 20110125
  Receipt Date: 20110117
  Transmission Date: 20110831
  Serious: Yes (Hospitalization)
  Sender: FDA-Public Use
  Company Number: CA-JNJFOC-20110104603

PATIENT
  Sex: Male
  Weight: 111 kg

DRUGS (12)
  1. PANTOLOC [Concomitant]
  2. ATENOLOL [Concomitant]
  3. SURGAM [Concomitant]
  4. FOLIC ACID [Concomitant]
  5. METHOTREXATE [Concomitant]
     Dosage: 3 TABS PER WEEK.
  6. ASPIRIN [Concomitant]
  7. VIAGRA [Concomitant]
  8. REMICADE [Suspect]
     Indication: RHEUMATOID ARTHRITIS
     Route: 042
  9. LIPITOR [Concomitant]
  10. HYDROCHLOROTHIAZIDE [Concomitant]
  11. VASOTEC [Concomitant]
  12. EZETROL [Concomitant]

REACTIONS (1)
  - PANCREATITIS [None]
